FAERS Safety Report 5615552-3 (Version None)
Quarter: 2008Q1

REPORT INFORMATION
  Report Type: 
  Country: None (occurrence: None)
  Receive Date: 20080206
  Receipt Date: 20080123
  Transmission Date: 20080703
  Serious: Yes (Other)
  Sender: FDA-Public Use
  Company Number: US-BAYER-200810023BCC

PATIENT
  Age: 55 Year
  Sex: Male
  Weight: 84 kg

DRUGS (5)
  1. ASPIRIN [Suspect]
     Indication: ISCHAEMIC HEART DISEASE PROPHYLAXIS
     Dosage: TOTAL DAILY DOSE: 81 MG  UNIT DOSE: 81 MG
     Route: 048
     Dates: start: 19780101
  2. PLAVIX [Concomitant]
  3. ZOCOR [Concomitant]
  4. PRINIVIL [Concomitant]
  5. VITAMIN CAP [Concomitant]

REACTIONS (3)
  - CEREBROVASCULAR ACCIDENT [None]
  - DIPLOPIA [None]
  - VISUAL DISTURBANCE [None]
